FAERS Safety Report 23453444 (Version 1)
Quarter: 2024Q1

REPORT INFORMATION
  Report Type: Spontaneous
  Country: US (occurrence: US)
  Receive Date: 20240129
  Receipt Date: 20240129
  Transmission Date: 20240409
  Serious: Yes (Death, Hospitalization)
  Sender: FDA-Public Use
  Company Number: US-FreseniusKabi-FK202401465

PATIENT
  Age: 70 Year
  Sex: Male

DRUGS (1)
  1. PROPOFOL [Suspect]
     Active Substance: PROPOFOL
     Indication: General anaesthesia
     Dosage: 100MG OF PROPOFOL WAS USED FOR INDUCTION, FOLLOWED BY 10.5 MG/KG/HR FOR MAINTENANCE. TOTAL PROPOFOL

REACTIONS (1)
  - Propofol infusion syndrome [Fatal]
